FAERS Safety Report 5943320-1 (Version None)
Quarter: 2008Q4

REPORT INFORMATION
  Report Type: 
  Country: None (occurrence: None)
  Receive Date: 20081106
  Receipt Date: 20081030
  Transmission Date: 20090506
  Serious: Yes (Other)
  Sender: FDA-Public Use
  Company Number: PHHY2008JP26557

PATIENT
  Age: 49 Year
  Sex: Female

DRUGS (4)
  1. NEORAL [Suspect]
     Indication: MIXED CONNECTIVE TISSUE DISEASE
     Dosage: 75 MG/DAY
     Route: 048
  2. PREDNISOLONE [Concomitant]
     Dosage: 50 MG
  3. PREDNISOLONE [Concomitant]
     Dosage: 30 MG
  4. PREDNISOLONE [Concomitant]
     Dosage: 5 MG

REACTIONS (2)
  - CONFUSIONAL STATE [None]
  - PLEURAL EFFUSION [None]
